FAERS Safety Report 19503271 (Version 1)
Quarter: 2021Q3

REPORT INFORMATION
  Report Type: Spontaneous
  Country: CN (occurrence: CN)
  Receive Date: 20210707
  Receipt Date: 20210707
  Transmission Date: 20211014
  Serious: Yes (Life-Threatening)
  Sender: FDA-Public Use
  Company Number: CN-BAYER-2021-170955

PATIENT
  Age: 66 Year
  Sex: Female
  Weight: 60 kg

DRUGS (2)
  1. IOPROMIDE. [Suspect]
     Active Substance: IOPROMIDE
     Indication: ANGIOCARDIOGRAM
     Dosage: 60 ML, ONCE
     Route: 042
     Dates: start: 20210414, end: 20210414
  2. IOPROMIDE. [Suspect]
     Active Substance: IOPROMIDE
     Indication: CHEST DISCOMFORT

REACTIONS (5)
  - Dizziness [Recovering/Resolving]
  - Blood pressure systolic increased [None]
  - Vomiting [Recovering/Resolving]
  - Respiratory rate increased [None]
  - Chest discomfort [Recovering/Resolving]

NARRATIVE: CASE EVENT DATE: 20210414
